FAERS Safety Report 5864093-7 (Version None)
Quarter: 2008Q3

REPORT INFORMATION
  Report Type: 
  Country: None (occurrence: None)
  Receive Date: 20080829
  Receipt Date: 20080818
  Transmission Date: 20090109
  Serious: Yes (Other)
  Sender: FDA-Public Use
  Company Number: US-ROCHE-562584

PATIENT
  Sex: Female
  Weight: 90.7 kg

DRUGS (17)
  1. PEGASYS [Suspect]
     Route: 058
     Dates: start: 20060306, end: 20070205
  2. RIBAVIRIN [Suspect]
     Dosage: 3 CAPS TWICE DAILY
     Route: 048
     Dates: start: 20060306, end: 20070212
  3. LEVOTHYROXINE [Concomitant]
     Indication: THYROID DISORDER
     Dosage: DRUG NAME LEVOTHYROXIN
  4. HYDROCHLOROTHIAZIDE [Concomitant]
     Dosage: DRUG NAME TRIM-HCTZ
  5. LAMICTAL [Concomitant]
  6. 1 CONCOMITANT DRUG [Concomitant]
     Dosage: DRUG HERBS
  7. MULTI-VITAMIN [Concomitant]
     Dosage: EVERY DAY
     Route: 048
  8. ASPIRIN [Concomitant]
     Route: 048
  9. BYETTA [Concomitant]
     Dosage: DRUG NAME: BICTTA; EVERY DAY
     Route: 048
  10. NEXIUM [Concomitant]
     Indication: ILL-DEFINED DISORDER
     Dosage: EVERY DAY
     Route: 048
  11. DICYCLOMINE [Concomitant]
     Route: 048
  12. LISINOPRIL [Concomitant]
     Dosage: STRENGTH 10/12.5 MG; EVERY DAY
     Route: 048
  13. ASPIRIN [Concomitant]
     Dosage: EVERY DAY
     Route: 048
  14. MILK THISTLE [Concomitant]
     Route: 048
  15. GARLIC [Concomitant]
     Route: 048
  16. FISH OIL [Concomitant]
     Route: 048
  17. TYLENOL (CAPLET) [Concomitant]
     Dosage: AS NEEDED
     Route: 048

REACTIONS (20)
  - ALOPECIA [None]
  - AMNESIA [None]
  - ANAEMIA [None]
  - DEPRESSION [None]
  - DRY SKIN [None]
  - DYSPNOEA [None]
  - FATIGUE [None]
  - FEELING OF DESPAIR [None]
  - HEADACHE [None]
  - HYPOPHAGIA [None]
  - INSOMNIA [None]
  - MENINGIOMA [None]
  - NAUSEA [None]
  - PAROSMIA [None]
  - PRURITUS [None]
  - RASH [None]
  - SKIN DISORDER [None]
  - THERMOHYPERAESTHESIA [None]
  - VISUAL IMPAIRMENT [None]
  - WEIGHT DECREASED [None]
